FAERS Safety Report 9628600 (Version 1)
Quarter: 2013Q4

REPORT INFORMATION
  Report Type: Spontaneous
  Country: JP (occurrence: JP)
  Receive Date: 20131017
  Receipt Date: 20131017
  Transmission Date: 20140711
  Serious: Yes (Other)
  Sender: FDA-Public Use
  Company Number: JP-ASTRAZENECA-2013SE75498

PATIENT
  Age: 83 Year
  Sex: Male

DRUGS (3)
  1. SYMBICORT TURBUHALER [Suspect]
     Dosage: FOUR DOSAGE FORM, UNKNOWN FREQUENCY.
     Route: 055
  2. HARNAL D [Concomitant]
     Route: 048
  3. COMBINED GASTROINTESTINAL AGENTS [Concomitant]
     Dosage: DOSE UNKNOWN
     Route: 065

REACTIONS (2)
  - Wrist fracture [Unknown]
  - Haemorrhage subcutaneous [Unknown]
